FAERS Safety Report 23924159 (Version 2)
Quarter: 2024Q2

REPORT INFORMATION
  Report Type: Spontaneous
  Country: US (occurrence: US)
  Receive Date: 20240531
  Receipt Date: 20240617
  Transmission Date: 20240716
  Serious: No
  Sender: FDA-Public Use
  Company Number: US-BRISTOL-MYERS SQUIBB COMPANY-2024-082252

PATIENT
  Age: 50 Year
  Sex: Female
  Weight: 140.61 kg

DRUGS (1)
  1. REVLIMID [Suspect]
     Active Substance: LENALIDOMIDE
     Indication: Plasma cell myeloma
     Route: 048

REACTIONS (7)
  - Feeling abnormal [Not Recovered/Not Resolved]
  - Somnolence [Not Recovered/Not Resolved]
  - Staring [Not Recovered/Not Resolved]
  - Off label use [Unknown]
  - Diarrhoea [Unknown]
  - Fatigue [Unknown]
  - Platelet count decreased [Unknown]
